FAERS Safety Report 9504594 (Version 2)
Quarter: 2014Q1

REPORT INFORMATION
  Report Type: Spontaneous
  Country: US (occurrence: US)
  Receive Date: 20130906
  Receipt Date: 20140307
  Transmission Date: 20141002
  Serious: Yes (Death, Hospitalization)
  Sender: FDA-Public Use
  Company Number: US-B.I. PHARMACEUTICALS,INC./RIDGEFIELD-2013-BI-27594BP

PATIENT
  Age: 84 Year
  Sex: Female
  Weight: 61.23 kg

DRUGS (20)
  1. PRADAXA [Suspect]
     Indication: ATRIAL FIBRILLATION
     Dosage: 300 MG
     Route: 065
     Dates: start: 20111102, end: 20111227
  2. PRADAXA [Suspect]
     Dosage: 150 MG
     Route: 048
     Dates: start: 20111227, end: 20120407
  3. BETAPACE [Concomitant]
     Route: 065
  4. CARDIZEM [Concomitant]
     Indication: HYPERTENSION
     Route: 065
  5. LEXAPRO [Concomitant]
     Route: 065
  6. MECLIZINE [Concomitant]
     Route: 065
  7. ZOCOR [Concomitant]
     Route: 065
  8. LISINOPRIL [Concomitant]
     Route: 065
  9. ZYRTEC [Concomitant]
     Route: 065
  10. EXELON [Concomitant]
     Route: 065
  11. PRILOSEC [Concomitant]
     Route: 065
  12. NEURONTIN [Concomitant]
     Route: 065
  13. REMERON [Concomitant]
     Route: 065
  14. ASPIRIN [Concomitant]
     Route: 065
  15. SYNTHROID [Concomitant]
     Route: 065
  16. KEPPRA [Concomitant]
     Route: 065
  17. HALDOL [Concomitant]
     Route: 065
  18. NAPROSYN [Concomitant]
     Route: 065
  19. ATIVAN [Concomitant]
     Route: 065
  20. GENTAMICIN [Concomitant]
     Route: 065

REACTIONS (2)
  - Lower gastrointestinal haemorrhage [Fatal]
  - Syncope [Recovered/Resolved]
